FAERS Safety Report 8691754 (Version 5)
Quarter: 2013Q4

REPORT INFORMATION
  Report Type: Report from Study
  Country: RU (occurrence: RU)
  Receive Date: 20120730
  Receipt Date: 20131219
  Transmission Date: 20140711
  Serious: Yes (Hospitalization, Other)
  Sender: FDA-Public Use
  Company Number: RU-009507513-1207RUS009240

PATIENT
  Age: 31 Year
  Sex: Female
  Weight: 57 kg

DRUGS (3)
  1. PLACEBO [Suspect]
     Indication: CHRONIC HEPATITIS C
     Dosage: UNK
     Route: 048
     Dates: start: 20120329, end: 20120514
  2. PEG-INTRON [Suspect]
     Indication: CHRONIC HEPATITIS C
     Dosage: INITIAL DOSE:80 MCG, 0.5 ML.1 OF 5, REDIPEN
     Route: 058
     Dates: start: 20120301, end: 20120517
  3. RIBAVIRIN [Suspect]
     Indication: CHRONIC HEPATITIS C
     Dosage: 800 MG, BID,1 OF 1
     Route: 048
     Dates: start: 20120301, end: 20120517

REACTIONS (1)
  - Adverse event [Recovered/Resolved]
